FAERS Safety Report 11490837 (Version 1)
Quarter: 2015Q3

REPORT INFORMATION
  Report Type: Report from Study
  Country: US (occurrence: US)
  Receive Date: 20150910
  Receipt Date: 20150910
  Transmission Date: 20151125
  Serious: Yes (Other)
  Sender: FDA-Public Use
  Company Number: US-ACTELION-A-US2015-123571

PATIENT
  Age: 78 Year
  Sex: Female

DRUGS (12)
  1. MACITENTAN [Suspect]
     Active Substance: MACITENTAN
     Indication: PULMONARY ARTERIAL HYPERTENSION
     Dosage: 10 MG, QD
     Route: 048
     Dates: start: 20140625
  2. PREDNISONE. [Concomitant]
     Active Substance: PREDNISONE
  3. PROVENTIL [Concomitant]
     Active Substance: ALBUTEROL
  4. DIGOXIN. [Concomitant]
     Active Substance: DIGOXIN
  5. SILDENAFIL. [Concomitant]
     Active Substance: SILDENAFIL
  6. PLAQUENIL [Concomitant]
     Active Substance: HYDROXYCHLOROQUINE SULFATE
  7. COUMADIN [Concomitant]
     Active Substance: WARFARIN SODIUM
  8. FLONASE [Concomitant]
     Active Substance: FLUTICASONE PROPIONATE
  9. HYDROCODONE [Concomitant]
     Active Substance: HYDROCODONE
  10. SYNTHROID [Concomitant]
     Active Substance: LEVOTHYROXINE SODIUM
  11. ZYRTEC [Concomitant]
     Active Substance: CETIRIZINE HYDROCHLORIDE
  12. CLOBETASOL [Concomitant]
     Active Substance: CLOBETASOL

REACTIONS (3)
  - Vein disorder [Unknown]
  - Pulmonary embolism [Unknown]
  - Pulmonary mass [Unknown]

NARRATIVE: CASE EVENT DATE: 20150130
